FAERS Safety Report 16452991 (Version 1)
Quarter: 2019Q2

REPORT INFORMATION
  Report Type: Spontaneous
  Country: US (occurrence: US)
  Receive Date: 20190619
  Receipt Date: 20190619
  Transmission Date: 20190711
  Serious: No
  Sender: FDA-Public Use
  Company Number: US-ROCHE-2200742

PATIENT
  Sex: Male
  Weight: 90.8 kg

DRUGS (5)
  1. XARELTO [Concomitant]
     Active Substance: RIVAROXABAN
     Indication: ATRIAL FIBRILLATION
     Route: 065
     Dates: start: 2016
  2. AMIODARONE [Concomitant]
     Active Substance: AMIODARONE
     Indication: ATRIAL FIBRILLATION
     Route: 065
     Dates: start: 2016
  3. ACTEMRA [Suspect]
     Active Substance: TOCILIZUMAB
     Dosage: 3 DOSES TOTAL ADMINISTERED
     Route: 042
     Dates: start: 201801, end: 201805
  4. SYNTHROID [Concomitant]
     Active Substance: LEVOTHYROXINE SODIUM
     Route: 065
     Dates: start: 2017
  5. ACTEMRA [Suspect]
     Active Substance: TOCILIZUMAB
     Indication: TEMPORAL ARTERITIS
     Route: 042

REACTIONS (3)
  - Red blood cell count decreased [Unknown]
  - Platelet count decreased [Unknown]
  - Drug ineffective [Unknown]
